FAERS Safety Report 8478217-9 (Version None)
Quarter: 2012Q2

REPORT INFORMATION
  Report Type: 
  Country: None (occurrence: None)
  Receive Date: 20120629
  Receipt Date: 20120628
  Transmission Date: 20120825
  Serious: Yes (Death)
  Sender: FDA-Public Use
  Company Number: PHFR2012GB003314

PATIENT
  Sex: Female
  Weight: 52.4 kg

DRUGS (5)
  1. AFINITOR [Suspect]
     Indication: PANCREATIC NEUROENDOCRINE TUMOUR METASTATIC
     Dosage: 10 MG, QD
     Route: 048
     Dates: start: 20111024
  2. OMEPRAZOLE [Concomitant]
     Dosage: 40 MG, QD
     Route: 048
  3. CITALOPRAM HYDROBROMIDE [Concomitant]
     Dosage: 20 MG, QD
     Route: 048
  4. OCTREOTIDE ACETATE [Concomitant]
     Indication: NEUROENDOCRINE TUMOUR
     Route: 058
  5. ACETAMINOPHEN [Concomitant]
     Dosage: 1-4 G, UNK
     Route: 048

REACTIONS (1)
  - DEATH [None]
